FAERS Safety Report 24810553 (Version 1)
Quarter: 2025Q1

REPORT INFORMATION
  Report Type: Spontaneous
  Country: AU (occurrence: AU)
  Receive Date: 20250106
  Receipt Date: 20250106
  Transmission Date: 20250409
  Serious: Yes (Other)
  Sender: PFIZER
  Company Number: AU-PFIZER INC-PV202500000100

PATIENT
  Sex: Female

DRUGS (1)
  1. DEPO-PROVERA [Suspect]
     Active Substance: MEDROXYPROGESTERONE ACETATE
     Indication: Heavy menstrual bleeding

REACTIONS (5)
  - Crohn^s disease [Recovering/Resolving]
  - Visual impairment [Recovering/Resolving]
  - Alopecia [Recovering/Resolving]
  - Headache [Recovering/Resolving]
  - Off label use [Unknown]
